FAERS Safety Report 10347127 (Version 1)
Quarter: 2014Q3

REPORT INFORMATION
  Report Type: Spontaneous
  Country: US (occurrence: None)
  Receive Date: 20140725
  Receipt Date: 20140725
  Transmission Date: 20150326
  Serious: No
  Sender: FDA-Public Use
  Company Number: None

PATIENT
  Age: 29 Year
  Sex: Male
  Weight: 65.77 kg

DRUGS (3)
  1. VIIBRYD [Suspect]
     Active Substance: VILAZODONE HYDROCHLORIDE
     Indication: MAJOR DEPRESSION
     Dosage: 1 PILL  ONCE DAILY  TAKEN BY MOUTH
     Route: 048
     Dates: start: 20140709, end: 20140723
  2. VIIBRYD [Suspect]
     Active Substance: VILAZODONE HYDROCHLORIDE
     Indication: PERSONALITY DISORDER
     Dosage: 1 PILL  ONCE DAILY  TAKEN BY MOUTH
     Route: 048
     Dates: start: 20140709, end: 20140723
  3. VIIBRYD [Suspect]
     Active Substance: VILAZODONE HYDROCHLORIDE
     Indication: ANXIETY
     Dosage: 1 PILL  ONCE DAILY  TAKEN BY MOUTH
     Route: 048
     Dates: start: 20140709, end: 20140723

REACTIONS (7)
  - Gastrointestinal disorder [None]
  - Abnormal dreams [None]
  - Diarrhoea [None]
  - Sleep terror [None]
  - Sleep talking [None]
  - Muscle twitching [None]
  - Insomnia [None]

NARRATIVE: CASE EVENT DATE: 20140723
